FAERS Safety Report 25381620 (Version 1)
Quarter: 2025Q2

REPORT INFORMATION
  Report Type: Spontaneous
  Country: US (occurrence: US)
  Receive Date: 20250531
  Receipt Date: 20250531
  Transmission Date: 20250717
  Serious: No
  Sender: CIPLA
  Company Number: US-CIPLA LTD.-2024US11638

PATIENT

DRUGS (4)
  1. ALBUTEROL [Suspect]
     Active Substance: ALBUTEROL
     Indication: Cough
     Dates: start: 20241009
  2. ALBUTEROL [Suspect]
     Active Substance: ALBUTEROL
     Indication: Wheezing
  3. ALBUTEROL [Suspect]
     Active Substance: ALBUTEROL
     Indication: Dyspnoea
  4. ALBUTEROL [Suspect]
     Active Substance: ALBUTEROL
     Indication: Bronchitis

REACTIONS (6)
  - Discomfort [Unknown]
  - Device mechanical issue [Unknown]
  - Device delivery system issue [Unknown]
  - Product packaging issue [Unknown]
  - Product substitution issue [Unknown]
  - Throat irritation [Unknown]

NARRATIVE: CASE EVENT DATE: 20241009
